FAERS Safety Report 8921958 (Version 1)
Quarter: 2012Q4

REPORT INFORMATION
  Report Type: Spontaneous
  Country: US (occurrence: None)
  Receive Date: 20121119
  Receipt Date: 20121119
  Transmission Date: 20130627
  Serious: Yes (Other)
  Sender: FDA-Public Use
  Company Number: None

PATIENT
  Age: 35 Year
  Sex: Male
  Weight: 77.11 kg

DRUGS (2)
  1. AMPHETAMINE IR 30MG TEVA [Suspect]
     Indication: ADHD
     Dosage: 30MG TID po
     Route: 048
     Dates: start: 20121001, end: 20121116
  2. AMPHETAMINE IR 30MG TEVA [Suspect]
     Indication: EXCESSIVE DAYTIME SLEEPINESS
     Dosage: 30MG TID po
     Route: 048
     Dates: start: 20121001, end: 20121116

REACTIONS (4)
  - Product formulation issue [None]
  - Product quality issue [None]
  - Metabolic disorder [None]
  - Angina pectoris [None]
